FAERS Safety Report 12996035 (Version 2)
Quarter: 2016Q4

REPORT INFORMATION
  Report Type: Spontaneous
  Country: US (occurrence: US)
  Receive Date: 20161202
  Receipt Date: 20161216
  Transmission Date: 20170207
  Serious: Yes (Hospitalization, Other)
  Sender: FDA-Public Use
  Company Number: US-PFIZER INC-2016545845

PATIENT
  Age: 28 Year
  Sex: Male
  Weight: 67.12 kg

DRUGS (13)
  1. LITHIUM. [Concomitant]
     Active Substance: LITHIUM
     Dosage: UNK
  2. XANAX [Suspect]
     Active Substance: ALPRAZOLAM
     Dosage: 0.5 MG, 3X/DAY
     Dates: start: 20161111, end: 20161116
  3. XANAX [Suspect]
     Active Substance: ALPRAZOLAM
     Indication: PANIC ATTACK
     Dosage: 1 DF, UNK
     Route: 048
     Dates: start: 1980
  4. XANAX [Suspect]
     Active Substance: ALPRAZOLAM
     Dosage: FOUR HALF PILLS PER WEEK
     Dates: start: 2013, end: 2013
  5. XANAX [Suspect]
     Active Substance: ALPRAZOLAM
     Dosage: TWO HALF PILLS PER WEEK
     Dates: start: 2013, end: 2013
  6. DIENESTROL [Concomitant]
     Active Substance: DIENESTROL
     Dosage: UNK
  7. XANAX [Suspect]
     Active Substance: ALPRAZOLAM
     Dosage: THREE HALF PILLS PER WEEK
     Dates: start: 2013, end: 2013
  8. AMOXICILLIN. [Concomitant]
     Active Substance: AMOXICILLIN
     Indication: OROPHARYNGEAL PAIN
     Dosage: UNK
  9. XANAX [Suspect]
     Active Substance: ALPRAZOLAM
     Indication: AGORAPHOBIA
     Dosage: HALF PILL FOR ABOUT A WEEK
     Dates: start: 2013, end: 2013
  10. XANAX [Suspect]
     Active Substance: ALPRAZOLAM
     Dosage: ONE HALF PILL PER WEEK
     Dates: start: 2013, end: 2013
  11. XANAX [Suspect]
     Active Substance: ALPRAZOLAM
     Dosage: 5 HALF PILLS PER WEEK
     Dates: start: 2013, end: 2013
  12. XANAX [Suspect]
     Active Substance: ALPRAZOLAM
     Dosage: IN THE MORNING
     Route: 048
     Dates: start: 2016
  13. XANAX [Suspect]
     Active Substance: ALPRAZOLAM
     Indication: ANXIETY
     Dosage: 4 TO 6 TO 8 MG DAILY
     Route: 048
     Dates: start: 1980, end: 2010

REACTIONS (45)
  - Vomiting [Recovering/Resolving]
  - Homicidal ideation [Unknown]
  - Weight increased [Recovering/Resolving]
  - Condition aggravated [Unknown]
  - Cough [Recovered/Resolved]
  - Dysgeusia [Recovering/Resolving]
  - Expired product administered [Unknown]
  - Panic attack [Unknown]
  - Asthenia [Unknown]
  - Blood pressure decreased [Unknown]
  - Limb deformity [Unknown]
  - Anxiety [Recovered/Resolved]
  - Cognitive disorder [Not Recovered/Not Resolved]
  - Abdominal discomfort [Recovering/Resolving]
  - Drug dependence [Unknown]
  - Colon cancer [Unknown]
  - Concussion [Unknown]
  - Musculoskeletal stiffness [Unknown]
  - Lung disorder [Unknown]
  - Diverticulitis [Unknown]
  - Dizziness [Recovering/Resolving]
  - Feeding disorder [Recovering/Resolving]
  - Drug withdrawal syndrome [Unknown]
  - Drug dose omission [Unknown]
  - Heart rate decreased [Unknown]
  - Spinal column stenosis [Unknown]
  - Gait disturbance [Unknown]
  - Haemorrhage [Unknown]
  - Head injury [Unknown]
  - Intentional product misuse [Unknown]
  - Tooth fracture [Unknown]
  - Weight decreased [Recovering/Resolving]
  - Skull fracture [Unknown]
  - Suicidal ideation [Recovered/Resolved]
  - Appendicitis perforated [Unknown]
  - Cataract [Unknown]
  - Large intestine polyp [Unknown]
  - Muscle atrophy [Recovering/Resolving]
  - Malaise [Recovering/Resolving]
  - Abasia [Recovered/Resolved]
  - Aggression [Unknown]
  - Choking [Recovered/Resolved]
  - Fatigue [Unknown]
  - Tinnitus [Recovered/Resolved]
  - Head discomfort [Unknown]

NARRATIVE: CASE EVENT DATE: 1980
